FAERS Safety Report 4742922-8 (Version None)
Quarter: 2005Q3

REPORT INFORMATION
  Report Type: 
  Country: None (occurrence: None)
  Receive Date: 20050810
  Receipt Date: 20050810
  Transmission Date: 20060218
  Serious: Yes (Other)
  Sender: FDA-Public Use
  Company Number: None

PATIENT
  Sex: Female
  Weight: 104.3273 kg

DRUGS (1)
  1. PAROXETINE HCL [Suspect]
     Dosage: 20 MG  DAILY  ORAL
     Route: 048
     Dates: start: 19990717, end: 20050707

REACTIONS (7)
  - CHILLS [None]
  - DIARRHOEA [None]
  - FEELING ABNORMAL [None]
  - HEADACHE [None]
  - MYALGIA [None]
  - NAUSEA [None]
  - PARAESTHESIA [None]
